FAERS Safety Report 9236378 (Version 2)
Quarter: 2013Q2

REPORT INFORMATION
  Report Type: Spontaneous
  Country: US (occurrence: US)
  Receive Date: 20130417
  Receipt Date: 20130521
  Transmission Date: 20140414
  Serious: Yes (Other)
  Sender: FDA-Public Use
  Company Number: US-PFIZER INC-2013120762

PATIENT
  Age: 44 Year
  Sex: Male
  Weight: 118 kg

DRUGS (8)
  1. LYRICA [Suspect]
     Indication: MIGRAINE
     Dosage: 800 MG, 1X/DAY ( IN 1 DAY)
  2. LYRICA [Suspect]
     Indication: FIBROMYALGIA
     Dosage: 900 MG, 1X/DAY ( IN 1 DAY)
  3. LYRICA [Suspect]
     Dosage: 800 MG, 1X/DAY ( IN 1 DAY)
  4. LYRICA [Suspect]
     Dosage: 600 MG, 1X/DAY ( IN 1 DAY)
  5. LYRICA [Suspect]
     Dosage: 400 MG, 1X/DAY ( IN 1 DAY)
  6. LYRICA [Suspect]
     Dosage: 600 MG, 1X/DAY
  7. LYRICA [Suspect]
     Dosage: 600 MG, 1X/DAY
  8. TOPAMAX [Suspect]
     Indication: PAIN
     Dosage: UNK
     Route: 048

REACTIONS (15)
  - Overdose [Unknown]
  - Weight increased [Unknown]
  - Dysstasia [Unknown]
  - Withdrawal syndrome [Unknown]
  - Movement disorder [Unknown]
  - Hypokinesia [Unknown]
  - Nausea [Recovering/Resolving]
  - Tremor [Unknown]
  - Drug ineffective [Unknown]
  - Feeling abnormal [Unknown]
  - Somnolence [Unknown]
  - Vertigo [Recovering/Resolving]
  - Urinary incontinence [Unknown]
  - Off label use [Unknown]
  - Unevaluable event [Unknown]
